FAERS Safety Report 6889409-4 (Version None)
Quarter: 2010Q3

REPORT INFORMATION
  Report Type: 
  Country: None (occurrence: None)
  Receive Date: 20100730
  Receipt Date: 20080910
  Transmission Date: 20110219
  Serious: Yes (Hospitalization)
  Sender: FDA-Public Use
  Company Number: US-PFIZER INC-2008016739

PATIENT
  Sex: Female

DRUGS (4)
  1. LIPITOR [Suspect]
     Dates: start: 20070101
  2. AGGRENOX [Concomitant]
  3. METFORMIN HCL [Concomitant]
  4. PLAVIX [Concomitant]

REACTIONS (3)
  - ABDOMINAL PAIN [None]
  - ALANINE AMINOTRANSFERASE INCREASED [None]
  - ASPARTATE AMINOTRANSFERASE INCREASED [None]
